FAERS Safety Report 23708100 (Version 2)
Quarter: 2024Q2

REPORT INFORMATION
  Report Type: Spontaneous
  Country: BR (occurrence: BR)
  Receive Date: 20240404
  Receipt Date: 20240415
  Transmission Date: 20240715
  Serious: No
  Sender: FDA-Public Use
  Company Number: BR-AMERICAN REGENT INC-2024001150

PATIENT
  Sex: Female
  Weight: 66 kg

DRUGS (1)
  1. VENOFER [Suspect]
     Active Substance: IRON SUCROSE
     Indication: Mineral supplementation
     Dosage: DOSAGE OF 1 AMPOULE (5 ML) EVERY 5 DAYS IN ALTERNATING WINDOWS (100 MG, 1 IN 5 D)
     Dates: start: 202309, end: 20240318

REACTIONS (1)
  - Maternal exposure during pregnancy [Unknown]
